FAERS Safety Report 7763898-5 (Version None)
Quarter: 2011Q3

REPORT INFORMATION
  Report Type: 
  Country: None (occurrence: None)
  Receive Date: 20110921
  Receipt Date: 20100319
  Transmission Date: 20111222
  Serious: Yes (Hospitalization)
  Sender: FDA-Public Use
  Company Number: DE-RANBAXY-2010US-45778

PATIENT

DRUGS (92)
  1. ACETYLCYSTEINE [Suspect]
     Indication: PRODUCT USED FOR UNKNOWN INDICATION
     Dosage: 600.000000 MG, BID
     Route: 048
     Dates: start: 20070905, end: 20070918
  2. METOPROLOL SUCCINATE [Suspect]
     Indication: HYPERTENSION
     Dosage: UNK
     Route: 048
     Dates: start: 20070902
  3. BERODUAL [Suspect]
     Indication: OBSTRUCTIVE AIRWAYS DISORDER
     Dosage: UNK
     Route: 055
     Dates: start: 20070906
  4. COMBACTAM [Suspect]
     Indication: PSOAS ABSCESS
     Dosage: 1.000000 G, BID
     Route: 042
     Dates: start: 20070828, end: 20070828
  5. LEVOTHYROXINE SODIUM [Suspect]
     Indication: HYPOTHYROIDISM
     Dosage: 75.000000 UG, UNK
     Route: 048
     Dates: start: 20070910
  6. MUCOSOLVAN [Suspect]
     Dosage: UNK
     Route: 042
     Dates: start: 20070907, end: 20070912
  7. NOVALGIN [Suspect]
     Indication: PAIN
     Dosage: 1 G, TID
     Route: 048
     Dates: start: 20070829, end: 20070914
  8. AMITRIPTYLINE HCL [Suspect]
     Indication: PAIN
     Dosage: 75.000000 MG, QD
     Route: 048
     Dates: start: 20070907, end: 20070914
  9. TRAMADOL HYDROCHLORIDE [Suspect]
     Dosage: 60 DOSAGE FORMS, 20 DOSAGE FORMS, TID
     Route: 048
     Dates: start: 20070912, end: 20070913
  10. HETASTARCH 6% IN 0.9% SODIUM CHLORIDE IN PLASTIC CONTAINER [Concomitant]
     Indication: PRODUCT USED FOR UNKNOWN INDICATION
     Dosage: UNK
     Route: 065
     Dates: start: 20070828, end: 20070829
  11. HETASTARCH 6% IN 0.9% SODIUM CHLORIDE IN PLASTIC CONTAINER [Concomitant]
     Dosage: UNK
     Route: 065
     Dates: start: 20070907, end: 20070913
  12. ACETAMINOPHEN [Concomitant]
     Dosage: UNK
     Route: 065
     Dates: start: 20070902, end: 20070903
  13. MULTIBIONTA [Concomitant]
     Indication: PRODUCT USED FOR UNKNOWN INDICATION
     Dosage: 1 DOSAGE FORM 1 IN 1 D
     Route: 065
     Dates: start: 20070902, end: 20070902
  14. LANTUS [Concomitant]
     Indication: PRODUCT USED FOR UNKNOWN INDICATION
     Dosage: UNK
     Route: 065
     Dates: start: 20070902, end: 20070902
  15. FOLIC ACID [Concomitant]
     Indication: PRODUCT USED FOR UNKNOWN INDICATION
     Dosage: 1 DOSAGE FORMS 1 IN 1 D
     Route: 065
     Dates: start: 20070902, end: 20070902
  16. SOLU-DECORTIN-H [Concomitant]
     Indication: PRODUCT USED FOR UNKNOWN INDICATION
     Dosage: 250 MG, QD
     Route: 065
     Dates: start: 20070906, end: 20070906
  17. SOLU-DECORTIN-H [Concomitant]
     Dosage: 250 MG, QD
     Route: 065
     Dates: start: 20070920, end: 20070920
  18. PERENTEROL [Concomitant]
     Indication: PRODUCT USED FOR UNKNOWN INDICATION
     Dosage: 6 DOSAGE FROMS( 2 DOSAGE FORMS 3 IN 1 D)
     Route: 065
     Dates: start: 20070916, end: 20070919
  19. NITROGLYCERIN [Concomitant]
     Indication: PRODUCT USED FOR UNKNOWN INDICATION
     Dosage: 2 DOSAGE FORMS(2 DOSAGE FORMS 1 IN 1 D)
     Route: 065
     Dates: start: 20070917, end: 20070917
  20. CLINDAMYCIN HCL [Concomitant]
     Indication: PRODUCT USED FOR UNKNOWN INDICATION
     Dosage: 600 MG, TID
     Dates: start: 20070828, end: 20070828
  21. PANTOPRAZOLE [Suspect]
     Dosage: 20 MG, BID
     Route: 042
     Dates: start: 20070905
  22. LORAZEPAM [Suspect]
     Dosage: 1 MG, QD
     Route: 048
     Dates: start: 20070920, end: 20070920
  23. AVELOX [Suspect]
     Indication: PSOAS ABSCESS
     Dosage: 400.000000 MG, QD
     Route: 048
     Dates: start: 20070916, end: 20070919
  24. ENOXAPARIN SODIUM [Suspect]
     Indication: THROMBOSIS PROPHYLAXIS
     Dosage: UNK
     Route: 058
     Dates: start: 20070908
  25. DICLOFENAC SODIUM [Suspect]
     Indication: PAIN
     Dosage: 75.000000 MG, BID
     Route: 048
     Dates: start: 20070908, end: 20070912
  26. MUCOSOLVAN [Suspect]
     Indication: PRODUCT USED FOR UNKNOWN INDICATION
     Dosage: 15.000000 MG, TID
     Route: 048
     Dates: start: 20070913
  27. NORVASC [Suspect]
     Indication: HYPERTENSION
     Dosage: 10.000000 MG, QD
     Route: 048
     Dates: start: 20070902
  28. NOVALGIN [Suspect]
     Dosage: 30 DOSAGE FORMS
     Route: 048
     Dates: start: 20070923, end: 20070925
  29. AMINO ACIDS NOS [Concomitant]
     Indication: PRODUCT USED FOR UNKNOWN INDICATION
     Dosage: UNK
     Route: 065
     Dates: start: 20070828, end: 20070828
  30. CLINDAMYCIN [Concomitant]
     Indication: PRODUCT USED FOR UNKNOWN INDICATION
     Dosage: 600 MG, TID
     Route: 065
     Dates: start: 20070828, end: 20070831
  31. JONOSTERIL [Concomitant]
     Dosage: UNK
     Route: 065
     Dates: start: 20070906, end: 20070911
  32. JONOSTERIL [Concomitant]
     Dosage: UNK
     Route: 065
     Dates: start: 20070914, end: 20070916
  33. ACETAMINOPHEN [Concomitant]
     Indication: PRODUCT USED FOR UNKNOWN INDICATION
     Dosage: UNK
     Route: 065
     Dates: start: 20070828, end: 20070828
  34. POTASSIUM CITRATE [Concomitant]
     Indication: PRODUCT USED FOR UNKNOWN INDICATION
     Dosage: 2 DOSAGE FORMS, 1 IN 1 D
     Route: 065
     Dates: start: 20070902, end: 20070903
  35. VITAMIN B COMPLEX CAP [Concomitant]
     Indication: PRODUCT USED FOR UNKNOWN INDICATION
     Dosage: 1 DOSAGE FORMS 1 IN 1 D
     Route: 065
     Dates: start: 20070911, end: 20070911
  36. PREDNISOLONE [Concomitant]
     Indication: PRODUCT USED FOR UNKNOWN INDICATION
     Dosage: UNK
     Route: 065
     Dates: start: 20070921, end: 20070924
  37. ACETAMINOPHEN [Suspect]
     Indication: PYREXIA
     Dosage: UNK, UNK
     Route: 048
     Dates: start: 20070912, end: 20070916
  38. ADALAT [Suspect]
     Indication: HYPERTENSION
     Dosage: UNK
     Route: 048
     Dates: start: 20070911, end: 20070914
  39. CATAPRESAN [Suspect]
     Dosage: 150 MG, TID
     Route: 048
     Dates: start: 20070912
  40. HYDROCHLOROTHIAZIDE [Suspect]
     Indication: POLYURIA
     Dosage: 25.000000 MG, QD
     Route: 048
     Dates: start: 20070907, end: 20070911
  41. DIAZEPAM [Concomitant]
     Indication: PRODUCT USED FOR UNKNOWN INDICATION
     Dosage: 2.5 MG, 5 IN 1 D
     Route: 065
     Dates: start: 20070828, end: 20070828
  42. LASIX [Concomitant]
     Indication: PRODUCT USED FOR UNKNOWN INDICATION
     Dosage: UNK
     Route: 065
     Dates: start: 20070828, end: 20070905
  43. ACETAMINOPHEN [Concomitant]
     Dosage: UNK
     Route: 065
     Dates: start: 20070922, end: 20070922
  44. TPN ELECTROLYTES IN PLASTIC CONTAINER [Concomitant]
     Indication: PRODUCT USED FOR UNKNOWN INDICATION
     Dosage: UNK
     Route: 065
     Dates: start: 20070829, end: 20070831
  45. MEPERIDINE HCL [Concomitant]
     Indication: PRODUCT USED FOR UNKNOWN INDICATION
     Dosage: 25 MG, QD
     Route: 065
     Dates: start: 20070902, end: 20070902
  46. FENISTIL [Concomitant]
     Dosage: 1 DOSAGE FORMS 1 IN 1 D
     Route: 065
     Dates: start: 20070919
  47. TPN [Concomitant]
     Indication: PRODUCT USED FOR UNKNOWN INDICATION
     Dosage: UNK
     Route: 065
     Dates: start: 20070912, end: 20070914
  48. KALINOR [Concomitant]
     Indication: PRODUCT USED FOR UNKNOWN INDICATION
     Dosage: 150 MG, BID
     Route: 065
     Dates: start: 20070912, end: 20070920
  49. PANTOPRAZOLE [Suspect]
     Indication: PROPHYLAXIS AGAINST GASTROINTESTINAL ULCER
     Dosage: 40 MG, QD
     Route: 042
     Dates: start: 20070828, end: 20070901
  50. ALDACTONE [Suspect]
     Indication: HYPERTENSION
     Dosage: 100 MG, QD
     Route: 048
     Dates: start: 20070903, end: 20070903
  51. INSULIN [Suspect]
     Indication: HYPERGLYCAEMIA
     Dosage: UNK
     Route: 058
     Dates: start: 20070905, end: 20070914
  52. ROCEPHIN [Suspect]
     Indication: PSOAS ABSCESS
     Dosage: 2.000000 G, BID
     Route: 042
     Dates: start: 20070828, end: 20070831
  53. BELOC [Concomitant]
     Indication: PRODUCT USED FOR UNKNOWN INDICATION
     Dosage: UNK
     Route: 065
  54. NOREPINEPHRINE BITARTRATE [Concomitant]
     Indication: PRODUCT USED FOR UNKNOWN INDICATION
     Dosage: UNK
     Route: 065
     Dates: start: 20070828, end: 20070831
  55. ACETAMINOPHEN [Concomitant]
     Dosage: UNK
     Route: 065
     Dates: start: 20070924, end: 20070924
  56. FENISTIL [Concomitant]
     Indication: PRODUCT USED FOR UNKNOWN INDICATION
     Dosage: 1 DOSAGE FORMS 1 IN 1 D
     Route: 065
     Dates: start: 20070908, end: 20070908
  57. SODIUM CHLORIDE INJ [Concomitant]
     Indication: PRODUCT USED FOR UNKNOWN INDICATION
     Dosage: UNK
     Route: 065
  58. LORAZEPAM [Suspect]
     Indication: RESTLESSNESS
     Dosage: 1 MG, QD
     Route: 048
     Dates: start: 20070907, end: 20070914
  59. LORAZEPAM [Suspect]
     Dosage: 1 MG, QD
     Route: 048
     Dates: start: 20070922, end: 20070922
  60. ACETYLCYSTEINE [Suspect]
     Dosage: 600 MG, BID
     Route: 042
     Dates: start: 20070829, end: 20070829
  61. HYDROCORTISONE [Suspect]
     Dosage: UNK
     Route: 042
     Dates: start: 20070907, end: 20070914
  62. TRAMADOL HYDROCHLORIDE [Suspect]
     Indication: PAIN
     Dosage: 40 DOSAGE FORMS, 20 DOSAGE FORMS, BID
     Route: 048
     Dates: start: 20070908, end: 20070909
  63. POTASSIUM CHLORIDE [Concomitant]
     Indication: PRODUCT USED FOR UNKNOWN INDICATION
     Dosage: UNK
     Route: 065
     Dates: start: 20070828, end: 20070913
  64. NEOSTIGMINE [Concomitant]
     Indication: PRODUCT USED FOR UNKNOWN INDICATION
     Dosage: 1 MG, UNK
     Route: 065
     Dates: start: 20070829, end: 20070901
  65. INSUMAN [Concomitant]
     Indication: PRODUCT USED FOR UNKNOWN INDICATION
     Dosage: 8 IU, 1 IN 1 D
     Route: 065
     Dates: start: 20070828, end: 20070828
  66. LORAZEPAM [Suspect]
     Dosage: 1 MG, QD
     Route: 048
     Dates: start: 20070918, end: 20070918
  67. ACETYLCYSTEINE [Suspect]
     Dosage: 300 MG, TID
     Route: 048
     Dates: start: 20070828, end: 20070828
  68. DIOVAN [Suspect]
     Indication: HYPERTENSION
     Dosage: 80 MG, QD
     Route: 048
     Dates: start: 20070907, end: 20070912
  69. DIPIDOLOR [Suspect]
     Indication: PAIN
     Dosage: 2 MG, 4 IN 1 DAY
     Route: 042
  70. DIPIDOLOR [Suspect]
     Dosage: 2 MG, TID
     Route: 042
  71. HYDROCORTISONE [Suspect]
     Indication: SEPSIS
     Dosage: UNK
     Route: 042
     Dates: start: 20070829, end: 20070901
  72. RIFAMPICIN [Suspect]
     Indication: PSOAS ABSCESS
     Dosage: 600.000000 MG, QD
     Route: 042
     Dates: start: 20070901, end: 20070916
  73. STAPHYLEX [Suspect]
     Indication: PSOAS ABSCESS
     Dosage: 2.000000 G, TID
     Route: 042
     Dates: start: 20070831, end: 20070916
  74. CLINDAMYCIN [Concomitant]
     Dosage: 2 DOSAGE FORMS, 1 DOSAGE FORM 2 IN 1 D
     Route: 065
     Dates: start: 20070920
  75. PROPOFOL [Concomitant]
     Indication: PRODUCT USED FOR UNKNOWN INDICATION
     Dosage: UNK
     Route: 065
     Dates: start: 20070828, end: 20070831
  76. JONOSTERIL [Concomitant]
     Indication: PRODUCT USED FOR UNKNOWN INDICATION
     Dosage: UNK
     Route: 065
     Dates: start: 20070828, end: 20070903
  77. EBRANTIL [Concomitant]
     Indication: PRODUCT USED FOR UNKNOWN INDICATION
     Dosage: 250 MG, QD
     Route: 065
     Dates: start: 20070831, end: 20070901
  78. VITAMIN B-12 [Concomitant]
     Indication: PRODUCT USED FOR UNKNOWN INDICATION
     Dosage: 1 DOSAGE FORMS 1 IN 1 D
     Route: 065
     Dates: start: 20090902, end: 20090902
  79. MAGNETRANS [Concomitant]
     Indication: PRODUCT USED FOR UNKNOWN INDICATION
     Dosage: 300 MG, TID
     Route: 065
     Dates: start: 20070911, end: 20070911
  80. DIPIDOLOR [Suspect]
     Dosage: 3 MG, TID
     Route: 042
  81. PIPERACILLIN [Suspect]
     Indication: PSOAS ABSCESS
     Dosage: 4.000000 G, BID
     Route: 042
     Dates: start: 20070828, end: 20070828
  82. JONOSTERIL [Concomitant]
     Dosage: UNK
     Route: 065
     Dates: start: 20070920, end: 20070921
  83. ACTRAPID MC [Concomitant]
     Indication: PRODUCT USED FOR UNKNOWN INDICATION
     Dosage: UNK
     Route: 065
     Dates: start: 20070829, end: 20070905
  84. TPN ELECTROLYTES IN PLASTIC CONTAINER [Concomitant]
     Dosage: UNK
     Route: 065
     Dates: start: 20070903, end: 20070905
  85. EMBOLEX [Concomitant]
     Indication: PRODUCT USED FOR UNKNOWN INDICATION
     Dosage: 3000 IU, 1 IN 1 D
     Route: 065
     Dates: start: 20070830, end: 20070907
  86. MORONAL [Concomitant]
     Indication: PRODUCT USED FOR UNKNOWN INDICATION
     Dosage: UNK
     Route: 065
     Dates: start: 20070914, end: 20070918
  87. HEPARIN [Concomitant]
     Indication: PRODUCT USED FOR UNKNOWN INDICATION
     Dosage: 15000 IU, 1 IN 1 D
     Route: 065
     Dates: start: 20070828, end: 20070828
  88. CATAPRESAN [Suspect]
     Indication: HYPERTENSION
     Dosage: UNK
     Route: 042
     Dates: start: 20070830, end: 20070831
  89. METOCLOPRAMIDE [Concomitant]
     Indication: PRODUCT USED FOR UNKNOWN INDICATION
     Dosage: 10 MG, TID
     Route: 065
     Dates: start: 20070828, end: 20070901
  90. SUFENTA PRESERVATIVE FREE [Concomitant]
     Indication: PRODUCT USED FOR UNKNOWN INDICATION
     Dosage: UNK
     Route: 065
     Dates: start: 20070829, end: 20070829
  91. VITAMIN K TAB [Concomitant]
     Indication: PRODUCT USED FOR UNKNOWN INDICATION
     Dosage: 1 DOSAGE FORMS 1 IN 1 D
     Route: 065
     Dates: start: 20070902, end: 20070902
  92. EUGALAC [Concomitant]
     Indication: PRODUCT USED FOR UNKNOWN INDICATION
     Dosage: UNK
     Route: 065
     Dates: start: 20070904, end: 20070905

REACTIONS (1)
  - STEVENS-JOHNSON SYNDROME [None]
